FAERS Safety Report 7309140-0 (Version None)
Quarter: 2011Q1

REPORT INFORMATION
  Report Type: 
  Country: None (occurrence: None)
  Receive Date: 20110223
  Receipt Date: 20110218
  Transmission Date: 20110831
  Serious: Yes (Life-Threatening)
  Sender: FDA-Public Use
  Company Number: PHHY2011HU14052

PATIENT
  Sex: Male

DRUGS (5)
  1. BETALOC ZOK [Concomitant]
     Dosage: 50 MG, BID
  2. VALSARTAN/HYDROCHLOROTHIAZIDE [Suspect]
     Indication: HYPERTONIA
     Dosage: 1 DF, QD (80/12.5 MG)
     Route: 048
     Dates: start: 20110216, end: 20110216
  3. ASPIRIN [Concomitant]
     Dosage: 100 MG, QD
  4. ZOCOR [Concomitant]
     Dosage: 40 MG, QD
  5. TANTUM VERDE [Concomitant]

REACTIONS (4)
  - PHARYNGEAL OEDEMA [None]
  - DYSPHAGIA [None]
  - DYSPHONIA [None]
  - ANGIOEDEMA [None]
